FAERS Safety Report 11439142 (Version 1)
Quarter: 2015Q3

REPORT INFORMATION
  Report Type: Spontaneous
  Country: US (occurrence: US)
  Receive Date: 20150901
  Receipt Date: 20150901
  Transmission Date: 20151125
  Serious: No
  Sender: FDA-Public Use
  Company Number: US-ROCHE-1167016

PATIENT
  Sex: Male

DRUGS (3)
  1. RIBAVIRIN. [Suspect]
     Active Substance: RIBAVIRIN
     Indication: HEPATITIS C
     Route: 065
     Dates: start: 20121022
  2. AMBIEN [Concomitant]
     Active Substance: ZOLPIDEM TARTRATE
     Indication: INSOMNIA
  3. PEGASYS [Suspect]
     Active Substance: PEGINTERFERON ALFA-2A
     Indication: HEPATITIS C
     Route: 065
     Dates: start: 20121022

REACTIONS (10)
  - Depression [Unknown]
  - Abdominal pain [Unknown]
  - Chromaturia [Unknown]
  - Nausea [Unknown]
  - Arthralgia [Unknown]
  - Heart rate increased [Unknown]
  - Anxiety [Unknown]
  - Paraesthesia [Unknown]
  - Insomnia [Unknown]
  - Constipation [Unknown]
